FAERS Safety Report 16040266 (Version 1)
Quarter: 2019Q1

REPORT INFORMATION
  Report Type: Spontaneous
  Country: US (occurrence: US)
  Receive Date: 20190306
  Receipt Date: 20190306
  Transmission Date: 20190418
  Serious: No
  Sender: FDA-Public Use
  Company Number: US-B.I. PHARMACEUTICALS,INC./RIDGEFIELD-2019-BI-008734

PATIENT
  Sex: Male

DRUGS (2)
  1. NEXIUM [Concomitant]
     Active Substance: ESOMEPRAZOLE MAGNESIUM
     Indication: PRODUCT USED FOR UNKNOWN INDICATION
     Route: 065
  2. SPIRIVA [Suspect]
     Active Substance: TIOTROPIUM BROMIDE MONOHYDRATE
     Indication: RESPIRATION ABNORMAL
     Dosage: ONE CAPSULE DAILY;STRENGTH: 18 MCG; FORM: CAPSULADMINISTRATION CORRECT? NO ?ACTION: DRUG WITHDRAWN
     Route: 055

REACTIONS (2)
  - Hypoacusis [Not Recovered/Not Resolved]
  - Extra dose administered [Recovered/Resolved]

NARRATIVE: CASE EVENT DATE: 2008
